FAERS Safety Report 17623020 (Version 4)
Quarter: 2020Q2

REPORT INFORMATION
  Report Type: Spontaneous
  Country: US (occurrence: US)
  Receive Date: 20200403
  Receipt Date: 20200617
  Transmission Date: 20200713
  Serious: Yes (Other)
  Sender: FDA-Public Use
  Company Number: US-VERTEX PHARMACEUTICALS-2020-007143

PATIENT
  Age: 19 Year
  Sex: Female

DRUGS (18)
  1. CREON [Concomitant]
     Active Substance: PANCRELIPASE AMYLASE\PANCRELIPASE LIPASE\PANCRELIPASE PROTEASE
     Route: 048
  2. AZITHROMYCIN ANHYDROUS. [Concomitant]
     Active Substance: AZITHROMYCIN ANHYDROUS
     Route: 048
  3. FERROUS SULFATE. [Concomitant]
     Active Substance: FERROUS SULFATE
     Route: 048
  4. OMEPRAZOLE. [Concomitant]
     Active Substance: OMEPRAZOLE
     Route: 048
  5. DIPHENHYDRAMINE. [Concomitant]
     Active Substance: DIPHENHYDRAMINE
     Route: 048
  6. HYDROXYZINE [Concomitant]
     Active Substance: HYDROXYZINE HYDROCHLORIDE
     Route: 048
  7. SODIUM CHLORIDE. [Concomitant]
     Active Substance: SODIUM CHLORIDE
     Route: 055
  8. TRIKAFTA [Suspect]
     Active Substance: ELEXACAFTOR\IVACAFTOR\TEZACAFTOR
     Indication: CYSTIC FIBROSIS
     Dosage: 2 TABS OF 100 MG ELEXA, 50 MG TEZA, 75 MG IVA AM; 1 TAB OF 150 MG IVA PM
     Route: 048
     Dates: start: 202002, end: 202003
  9. PULMOZYME [Concomitant]
     Active Substance: DORNASE ALFA
     Route: 055
  10. ALBUTEROL [SALBUTAMOL] [Concomitant]
     Active Substance: ALBUTEROL
     Route: 055
  11. CIPROFLOXACIN HCL [Concomitant]
     Active Substance: CIPROFLOXACIN HYDROCHLORIDE
     Route: 048
  12. CLINDAMYCIN. [Concomitant]
     Active Substance: CLINDAMYCIN
     Route: 048
  13. FLUTICASONE + SALMETEROL [Concomitant]
     Active Substance: FLUTICASONE FUROATE\SALMETEROL XINAFOATE
     Route: 055
  14. MIRENA [Concomitant]
     Active Substance: LEVONORGESTREL
     Indication: HORMONE THERAPY
  15. CETRIZINE [Concomitant]
     Active Substance: CETIRIZINE HYDROCHLORIDE
     Route: 048
  16. TRIKAFTA [Suspect]
     Active Substance: ELEXACAFTOR\IVACAFTOR\TEZACAFTOR
     Dosage: 2 TABS OF 100 MG ELEXA, 50 MG TEZA, 75 MG IVA AM; 1 TAB OF 150 MG IVA PM
     Route: 048
     Dates: start: 20200513, end: 20200513
  17. HYDROXYZINE [Concomitant]
     Active Substance: HYDROXYZINE HYDROCHLORIDE
     Dosage: UNK
     Route: 048
     Dates: start: 20200513
  18. IBUPROFEN. [Concomitant]
     Active Substance: IBUPROFEN
     Route: 048

REACTIONS (3)
  - Type IV hypersensitivity reaction [Recovered/Resolved]
  - Infective pulmonary exacerbation of cystic fibrosis [Unknown]
  - Drug eruption [Recovered/Resolved]

NARRATIVE: CASE EVENT DATE: 2020
